FAERS Safety Report 6603194-2 (Version None)
Quarter: 2010Q1

REPORT INFORMATION
  Report Type: 
  Country: None (occurrence: None)
  Receive Date: 20100219
  Receipt Date: 20100210
  Transmission Date: 20100710
  Serious: Yes (Hospitalization)
  Sender: FDA-Public Use
  Company Number: 100216-0000195

PATIENT
  Age: 17 Year
  Sex: Male
  Weight: 35 kg

DRUGS (3)
  1. INDOMETHACIN [Suspect]
     Indication: HYPOKALAEMIA
  2. SPIRONOLACTONE [Suspect]
     Indication: HYPOKALAEMIA
  3. POTASSIUM CHLORIDE [Suspect]
     Indication: HYPOKALAEMIA

REACTIONS (5)
  - BLOOD ALDOSTERONE INCREASED [None]
  - GITELMAN'S SYNDROME [None]
  - HYPOKALAEMIA [None]
  - MUSCULAR WEAKNESS [None]
  - RENAL FAILURE CHRONIC [None]
